FAERS Safety Report 14887243 (Version 1)
Quarter: 2018Q2

REPORT INFORMATION
  Report Type: Spontaneous
  Country: US (occurrence: US)
  Receive Date: 20180513
  Receipt Date: 20180513
  Transmission Date: 20180711
  Serious: No
  Sender: FDA-Public Use
  Company Number: US-JNJFOC-20180432548

PATIENT
  Sex: Male

DRUGS (2)
  1. CHANTIX [Suspect]
     Active Substance: VARENICLINE TARTRATE
     Indication: PRODUCT USED FOR UNKNOWN INDICATION
     Route: 065
  2. XARELTO [Suspect]
     Active Substance: RIVAROXABAN
     Indication: THROMBOSIS
     Route: 048

REACTIONS (2)
  - Rash generalised [Unknown]
  - Diarrhoea [Unknown]
